FAERS Safety Report 8294105-5 (Version None)
Quarter: 2012Q2

REPORT INFORMATION
  Report Type: 
  Country: None (occurrence: None)
  Receive Date: 20120418
  Receipt Date: 20120405
  Transmission Date: 20120825
  Serious: Yes (Other)
  Sender: FDA-Public Use
  Company Number: PHHY2012US031142

PATIENT
  Age: 57 Year
  Sex: Female

DRUGS (11)
  1. CYCLOSPORINE [Suspect]
     Dosage: 75 MG, BID
     Route: 048
     Dates: end: 20061101
  2. PREDNISONE TAB [Suspect]
     Dosage: 10 MG, UNK
  3. MYCOPHENOLATE MOFETIL [Concomitant]
     Dosage: 500 MG, BID
  4. CYCLOSPORINE [Suspect]
     Indication: RENAL TRANSPLANT
     Dosage: 400 MG, BID
     Route: 048
  5. MYCOPHENOLATE MOFETIL [Concomitant]
     Dosage: 1000 MG, BID
  6. ANTI-THYMOCYTE GLOBULIN RABBIT NOS [Concomitant]
     Dosage: 125 MG, UNK
  7. PREDNISONE TAB [Suspect]
     Dosage: UNK UKN, UNK
  8. PREDNISONE TAB [Suspect]
     Dosage: 5 MG, UNK
  9. MYCOPHENOLATE MOFETIL [Concomitant]
     Dosage: 500 MG, BID
  10. PREDNISONE TAB [Suspect]
     Dosage: 60 MG, UNK
  11. AZATHIOPRINE [Concomitant]
     Indication: RENAL TRANSPLANT
     Dosage: 200 MG, QD

REACTIONS (1)
  - GLOMERULONEPHRITIS MEMBRANOPROLIFERATIVE [None]
